FAERS Safety Report 6864796-1 (Version None)
Quarter: 2010Q3

REPORT INFORMATION
  Report Type: 
  Country: None (occurrence: None)
  Receive Date: 20100721
  Receipt Date: 20080403
  Transmission Date: 20110219
  Serious: No
  Sender: FDA-Public Use
  Company Number: US-PFIZER INC-2008029432

PATIENT
  Sex: Male
  Weight: 96.2 kg

DRUGS (5)
  1. CHANTIX [Suspect]
     Indication: SMOKING CESSATION THERAPY
     Route: 048
     Dates: start: 20080301
  2. CARDIOVASCULAR SYSTEM DRUGS [Concomitant]
  3. ANTITHROMBOTIC AGENTS [Concomitant]
  4. ANTIDEPRESSANTS [Concomitant]
  5. ANXIOLYTICS [Concomitant]

REACTIONS (4)
  - COUGH [None]
  - DECREASED APPETITE [None]
  - DYSGEUSIA [None]
  - NAUSEA [None]
